FAERS Safety Report 24960474 (Version 3)
Quarter: 2025Q2

REPORT INFORMATION
  Report Type: Spontaneous
  Country: US (occurrence: US)
  Receive Date: 20250212
  Receipt Date: 20250514
  Transmission Date: 20250716
  Serious: Yes (Other)
  Sender: PFIZER
  Company Number: US-PFIZER INC-202500028558

PATIENT
  Age: 86 Year
  Sex: Male

DRUGS (3)
  1. EUCRISA [Suspect]
     Active Substance: CRISABOROLE
     Indication: Dermatitis atopic
     Dosage: UNK, 2X/DAY
     Route: 061
     Dates: start: 201711
  2. TACROLIMUS [Concomitant]
     Active Substance: TACROLIMUS
  3. TRIAMCINOLONE [Concomitant]
     Active Substance: TRIAMCINOLONE

REACTIONS (1)
  - Gastrointestinal carcinoma [Recovered/Resolved]

NARRATIVE: CASE EVENT DATE: 20241101
